FAERS Safety Report 11212626 (Version 4)
Quarter: 2016Q1

REPORT INFORMATION
  Report Type: Report from Study
  Country: US (occurrence: US)
  Receive Date: 20150623
  Receipt Date: 20160318
  Transmission Date: 20160525
  Serious: Yes (Hospitalization)
  Sender: FDA-Public Use
  Company Number: US-ACTELION-A-NJ2015-111997

PATIENT
  Age: 79 Year
  Sex: Female

DRUGS (9)
  1. VITAMIN D [Concomitant]
     Active Substance: CHOLECALCIFEROL
     Dosage: 1000 UNK, QD
  2. WARFARIN [Concomitant]
     Active Substance: WARFARIN
  3. BUDESONIDE. [Concomitant]
     Active Substance: BUDESONIDE
     Dosage: UNK, BID
     Route: 055
  4. IRON [Concomitant]
     Active Substance: IRON
     Dosage: 325 MG, BID
  5. REVATIO [Concomitant]
     Active Substance: SILDENAFIL CITRATE
     Dosage: 20 MG, TID
  6. LOSARTAN. [Concomitant]
     Active Substance: LOSARTAN
     Dosage: 12.5 MG, BID
  7. MACITENTAN [Suspect]
     Active Substance: MACITENTAN
     Indication: PULMONARY HYPERTENSION
     Dosage: 10 MG, QD
     Route: 048
     Dates: start: 20141212
  8. ALBUTEROL. [Concomitant]
     Active Substance: ALBUTEROL
  9. CLONAZEPAM. [Concomitant]
     Active Substance: CLONAZEPAM
     Dosage: 0.5 MG, QPM

REACTIONS (17)
  - Respiratory failure [Recovered/Resolved]
  - Fall [Unknown]
  - Nasal congestion [Unknown]
  - Deep vein thrombosis [Recovered/Resolved]
  - Fluid retention [Unknown]
  - Cardiac pacemaker insertion [Recovered/Resolved]
  - Loss of consciousness [Unknown]
  - Syncope [Unknown]
  - Blood pressure fluctuation [Unknown]
  - Dizziness [Unknown]
  - No therapeutic response [Unknown]
  - Oxygen saturation decreased [Unknown]
  - Dyspnoea [Recovered/Resolved]
  - Malaise [Recovered/Resolved]
  - Cardiac arrest [Recovered/Resolved]
  - Eye contusion [Unknown]
  - Pneumonia [Unknown]

NARRATIVE: CASE EVENT DATE: 20150121
